FAERS Safety Report 7016229-2 (Version None)
Quarter: 2010Q3

REPORT INFORMATION
  Report Type: 
  Country: None (occurrence: None)
  Receive Date: 20100927
  Receipt Date: 20100601
  Transmission Date: 20110219
  Serious: No
  Sender: FDA-Public Use
  Company Number: US-ASTRAZENECA-2010SE25120

PATIENT
  Age: 70 Year
  Sex: Female
  Weight: 56.7 kg

DRUGS (6)
  1. ARIMIDEX [Suspect]
     Indication: BREAST CANCER
     Route: 048
     Dates: start: 20070101
  2. TAMOXIFEN CITRATE [Suspect]
  3. CRESTOR [Concomitant]
  4. VITAMIN D [Concomitant]
  5. CHEWABLE VITEC [Concomitant]
  6. PRIMODONE [Concomitant]
     Indication: ANXIETY

REACTIONS (7)
  - ALOPECIA [None]
  - ARTHRALGIA [None]
  - COELIAC DISEASE [None]
  - DRUG DOSE OMISSION [None]
  - HEADACHE [None]
  - TREMOR [None]
  - WEIGHT DECREASED [None]
